FAERS Safety Report 14305247 (Version 1)
Quarter: 2017Q4

REPORT INFORMATION
  Report Type: Spontaneous
  Country: US (occurrence: US)
  Receive Date: 20171219
  Receipt Date: 20171219
  Transmission Date: 20180321
  Serious: Yes (Hospitalization)
  Sender: FDA-Public Use
  Company Number: US-OTSUKA-16700759

PATIENT
  Sex: Female
  Weight: 82 kg

DRUGS (1)
  1. ABILIFY [Suspect]
     Active Substance: ARIPIPRAZOLE
     Indication: BIPOLAR DISORDER
     Dosage: THERAPY SINCE 13 YEARS
     Route: 065

REACTIONS (2)
  - Mania [Unknown]
  - Treatment noncompliance [Unknown]
